FAERS Safety Report 4317309-2 (Version None)
Quarter: 2004Q1

REPORT INFORMATION
  Report Type: 
  Country: None (occurrence: None)
  Receive Date: 20040302
  Receipt Date: 20040211
  Transmission Date: 20041129
  Serious: Yes (Other)
  Sender: FDA-Public Use
  Company Number: 2004SA000015

PATIENT
  Age: 73 Year
  Sex: Male
  Weight: 76 kg

DRUGS (9)
  1. THYMOGLOBULIN [Suspect]
     Indication: PROPHYLAXIS
     Dosage: 1.5 MG/KG; DAILY; INTRAVENOUS
     Route: 042
     Dates: start: 20030805, end: 20030806
  2. THYMOGLOBULIN [Suspect]
     Indication: TRANSPLANT REJECTION
     Dosage: 1.5 MG/KG; DAILY; INTRAVENOUS
     Route: 042
     Dates: start: 20030805, end: 20030806
  3. CELLCEPT [Concomitant]
  4. PREDNISONE [Concomitant]
  5. DILANTIN [Concomitant]
  6. CELEXA [Concomitant]
  7. PRILOSEC [Concomitant]
  8. REMERON [Concomitant]
  9. TOPROL-XL [Concomitant]

REACTIONS (3)
  - HYPOTENSION [None]
  - OXYGEN SATURATION DECREASED [None]
  - PLEURAL EFFUSION [None]
